FAERS Safety Report 6635091-0 (Version None)
Quarter: 2010Q1

REPORT INFORMATION
  Report Type: 
  Country: None (occurrence: None)
  Receive Date: 20100315
  Receipt Date: 20100303
  Transmission Date: 20100710
  Serious: Yes (Disabling, Other)
  Sender: FDA-Public Use
  Company Number: PHHY2010CA07115

PATIENT
  Sex: Male

DRUGS (8)
  1. SANDOSTATIN LAR [Suspect]
     Indication: ACROMEGALY
     Dosage: 30 MG, QMO
     Route: 030
     Dates: start: 20020220
  2. ATENOLOL [Concomitant]
  3. LIPITOR [Concomitant]
  4. LEVOTHYROXINE SODIUM [Concomitant]
  5. TESTOSTERONE [Concomitant]
     Dosage: UNK
  6. CELEXA [Concomitant]
  7. RISPERIDONE [Concomitant]
     Dosage: UNK
  8. RABEPRAZOLE SODIUM [Concomitant]

REACTIONS (7)
  - ABDOMINAL DISTENSION [None]
  - DIARRHOEA [None]
  - FLATULENCE [None]
  - GASTROINTESTINAL DISORDER [None]
  - NAUSEA [None]
  - SYNCOPE [None]
  - VOMITING [None]
